FAERS Safety Report 10218592 (Version 1)
Quarter: 2014Q2

REPORT INFORMATION
  Report Type: Spontaneous
  Country: US (occurrence: None)
  Receive Date: 20140604
  Receipt Date: 20140604
  Transmission Date: 20141212
  Serious: Yes (Other)
  Sender: FDA-Public Use
  Company Number: None

PATIENT
  Age: 70 Year
  Sex: Male

DRUGS (1)
  1. IMBRUVICA [Suspect]
     Indication: B-CELL LYMPHOMA
     Dosage: TAKE 4 CAPS QD.
     Route: 048
     Dates: start: 20140408

REACTIONS (4)
  - Diarrhoea [None]
  - Dizziness [None]
  - Asthenia [None]
  - Oropharyngeal pain [None]
